FAERS Safety Report 8595692-X (Version None)
Quarter: 2012Q3

REPORT INFORMATION
  Report Type: 
  Country: None (occurrence: None)
  Receive Date: 20120815
  Receipt Date: 20120806
  Transmission Date: 20120928
  Serious: Yes (Hospitalization)
  Sender: FDA-Public Use
  Company Number: BR-ASTRAZENECA-2012SE55966

PATIENT
  Age: 48 Year
  Sex: Male
  Weight: 75 kg

DRUGS (7)
  1. CRESTOR [Suspect]
     Indication: BLOOD CHOLESTEROL INCREASED
     Route: 048
     Dates: start: 20100101
  2. NEXIUM [Suspect]
     Indication: GASTROOESOPHAGEAL REFLUX PROPHYLAXIS
     Route: 048
     Dates: start: 20110101, end: 20120301
  3. LEXAPRO [Concomitant]
     Indication: DEPRESSION
     Route: 048
  4. INSULIN [Concomitant]
     Indication: DIABETES MELLITUS
     Route: 058
  5. JANUMET [Concomitant]
     Indication: DIABETES MELLITUS
     Route: 048
  6. NEXIUM [Suspect]
     Route: 048
  7. RAMIPRIL [Concomitant]
     Route: 048

REACTIONS (1)
  - CORONARY ARTERY OCCLUSION [None]
